FAERS Safety Report 6495402-6 (Version None)
Quarter: 2009Q4

REPORT INFORMATION
  Report Type: 
  Country: None (occurrence: None)
  Receive Date: 20091214
  Receipt Date: 20090619
  Transmission Date: 20100525
  Serious: No
  Sender: FDA-Public Use
  Company Number: US-BRISTOL-MYERS SQUIBB COMPANY-14666259

PATIENT
  Age: 36 Year
  Sex: Female
  Weight: 66 kg

DRUGS (7)
  1. ABILIFY [Suspect]
     Indication: IRRITABILITY
     Dosage: DISCONTINUED ON ABOUT 12MAY09
     Route: 048
     Dates: start: 20090506, end: 20090501
  2. ABILIFY [Suspect]
     Indication: ANXIETY
     Dosage: DISCONTINUED ON ABOUT 12MAY09
     Route: 048
     Dates: start: 20090506, end: 20090501
  3. NORVASC [Concomitant]
     Indication: MIGRAINE
  4. ZOLOFT [Concomitant]
     Indication: IRRITABILITY
  5. ZOLOFT [Concomitant]
     Indication: ANXIETY
  6. ZOLOFT [Concomitant]
     Indication: DEPRESSION
  7. YAZ [Concomitant]
     Indication: CONTRACEPTION

REACTIONS (4)
  - DIZZINESS [None]
  - MIGRAINE [None]
  - NAUSEA [None]
  - NIGHTMARE [None]
